FAERS Safety Report 9494647 (Version 1)
Quarter: 2013Q3

REPORT INFORMATION
  Report Type: Spontaneous
  Country: FR (occurrence: None)
  Receive Date: 20130828
  Receipt Date: 20130828
  Transmission Date: 20140515
  Serious: Yes (Other)
  Sender: FDA-Public Use
  Company Number: 2013FR002312

PATIENT
  Sex: 0

DRUGS (3)
  1. PONATINIB [Suspect]
     Indication: PRODUCT USED FOR UNKNOWN INDICATION
     Route: 048
     Dates: start: 20130516, end: 20130611
  2. ADANCOR (NICORANDIL) [Concomitant]
  3. LEVOTHYROX (LEVOTHYROXINE SODIUM) INFUSION [Concomitant]

REACTIONS (1)
  - Hepatocellular injury [None]
